FAERS Safety Report 17898780 (Version 3)
Quarter: 2020Q3

REPORT INFORMATION
  Report Type: Spontaneous
  Country: US (occurrence: US)
  Receive Date: 20200615
  Receipt Date: 20200709
  Transmission Date: 20201103
  Serious: Yes (Hospitalization, Other)
  Sender: FDA-Public Use
  Company Number: US-ALKERMES INC.-ALK-2020-002383

PATIENT
  Age: 54 Year
  Sex: Female
  Weight: 72.11 kg

DRUGS (13)
  1. VIVITROL [Suspect]
     Active Substance: NALTREXONE
     Dosage: 380 MILLIGRAM, QMO
     Route: 030
     Dates: start: 201911, end: 201911
  2. VIVITROL [Suspect]
     Active Substance: NALTREXONE
     Dosage: 380 MILLIGRAM, QMO
     Route: 030
     Dates: start: 20191017, end: 20191017
  3. VIVITROL [Suspect]
     Active Substance: NALTREXONE
     Dosage: 380 MILLIGRAM, QMO
     Route: 030
     Dates: start: 20190919, end: 20190919
  4. NALTREXONE [Concomitant]
     Active Substance: NALTREXONE
     Indication: ALCOHOLISM
     Dosage: 50 MILLIGRAM, BID
     Route: 048
     Dates: start: 20200501
  5. NALTREXONE [Concomitant]
     Active Substance: NALTREXONE
     Indication: DRUG DEPENDENCE
     Dosage: 100 MILLIGRAM, QD
     Route: 048
     Dates: start: 20200131, end: 20200131
  6. VENLAFAXINE [Concomitant]
     Active Substance: VENLAFAXINE HYDROCHLORIDE
     Indication: PRODUCT USED FOR UNKNOWN INDICATION
     Dosage: UNK
     Route: 065
  7. GABAPENTIN. [Concomitant]
     Active Substance: GABAPENTIN
     Indication: PRODUCT USED FOR UNKNOWN INDICATION
     Dosage: 4 DOSAGE FORM, QD 1 IN THE MORNING, 1 IN THE EVENING, 2 AT BEDTIME
     Route: 065
  8. TRAZODONE [Concomitant]
     Active Substance: TRAZODONE HYDROCHLORIDE
     Indication: SLEEP DISORDER
     Dosage: 3 DOSAGE FORM, QHS
     Route: 065
  9. VIVITROL [Suspect]
     Active Substance: NALTREXONE
     Dosage: 380 MILLIGRAM, QMO
     Route: 030
     Dates: start: 201912, end: 201912
  10. NALTREXONE [Concomitant]
     Active Substance: NALTREXONE
     Dosage: 50 MILLIGRAM, QD
     Route: 048
     Dates: start: 20200113, end: 20200113
  11. VIVITROL [Suspect]
     Active Substance: NALTREXONE
     Indication: ALCOHOLISM
     Dosage: 380 MILLIGRAM, QMO
     Route: 030
     Dates: start: 20200221, end: 20200221
  12. VIVITROL [Suspect]
     Active Substance: NALTREXONE
     Indication: DRUG DEPENDENCE
     Dosage: 380 MILLIGRAM, QMO
     Route: 030
     Dates: start: 202001, end: 202001
  13. HYDROXYZINE [Concomitant]
     Active Substance: HYDROXYZINE HYDROCHLORIDE
     Indication: ANXIETY
     Dosage: 50 MILLIGRAM, TID AS NEEDED
     Route: 065

REACTIONS (10)
  - Troponin increased [Recovered/Resolved]
  - Hypokalaemia [Recovered/Resolved]
  - Hypomagnesaemia [Recovered/Resolved]
  - Headache [Recovered/Resolved]
  - Dyspnoea [Recovered/Resolved]
  - Chest discomfort [Unknown]
  - Myocardial infarction [Recovered/Resolved]
  - Asthenia [Unknown]
  - Chest pain [Recovered/Resolved]
  - Respiratory disorder [Recovered/Resolved]

NARRATIVE: CASE EVENT DATE: 20200520
